FAERS Safety Report 4494830-8 (Version None)
Quarter: 2004Q4

REPORT INFORMATION
  Report Type: 
  Country: None (occurrence: None)
  Receive Date: 20041103
  Receipt Date: 20041020
  Transmission Date: 20050328
  Serious: Yes (Death, Hospitalization)
  Sender: FDA-Public Use
  Company Number: A-CH2004-05506

PATIENT
  Age: 21 Year
  Sex: Female
  Weight: 40.7 kg

DRUGS (3)
  1. TRACLEER [Suspect]
     Indication: PULMONARY HYPERTENSION
     Dosage: 125 MG, BID, ORAL; SEE IMAGE
     Route: 048
     Dates: end: 20040310
  2. TRACLEER [Suspect]
     Indication: PULMONARY HYPERTENSION
     Dosage: 125 MG, BID, ORAL; SEE IMAGE
     Route: 048
     Dates: start: 20020614
  3. PREDNISOLONE [Concomitant]

REACTIONS (16)
  - ABSCESS [None]
  - BARRETT'S OESOPHAGUS [None]
  - DISEASE PROGRESSION [None]
  - FINGER AMPUTATION [None]
  - GASTRITIS EROSIVE [None]
  - HAEMOGLOBIN DECREASED [None]
  - IMPAIRED HEALING [None]
  - OCCULT BLOOD POSITIVE [None]
  - OSTEONECROSIS [None]
  - PERICARDIAL EFFUSION [None]
  - PNEUMONIA [None]
  - POST PROCEDURAL PAIN [None]
  - REFLUX OESOPHAGITIS [None]
  - RENAL FAILURE [None]
  - SKIN ULCER [None]
  - TRANSFERRIN SATURATION DECREASED [None]
